FAERS Safety Report 19942415 (Version 1)
Quarter: 2021Q4

REPORT INFORMATION
  Report Type: Spontaneous
  Country: BE (occurrence: BE)
  Receive Date: 20211012
  Receipt Date: 20211012
  Transmission Date: 20220303
  Serious: Yes (Life-Threatening, Hospitalization, Other)
  Sender: FDA-Public Use
  Company Number: BE-LUPIN PHARMACEUTICALS INC.-2021-19181

PATIENT
  Age: 85 Year
  Sex: Male

DRUGS (17)
  1. TOPIRAMATE [Suspect]
     Active Substance: TOPIRAMATE
     Indication: Status epilepticus
     Dosage: 100 MILLIGRAM, BID
     Route: 065
  2. TOPIRAMATE [Suspect]
     Active Substance: TOPIRAMATE
     Dosage: UNK, DOSE REDUCED
     Route: 065
  3. LACOSAMIDE [Suspect]
     Active Substance: LACOSAMIDE
     Indication: Status epilepticus
     Dosage: 100 MILLIGRAM, BID
     Route: 065
  4. LACOSAMIDE [Suspect]
     Active Substance: LACOSAMIDE
     Dosage: UNK, DOSE REDUCED
     Route: 065
  5. LEVETIRACETAM [Suspect]
     Active Substance: LEVETIRACETAM
     Indication: Status epilepticus
     Dosage: 2000 MILLIGRAM, BID
     Route: 065
  6. QUININE [Suspect]
     Active Substance: QUININE
     Indication: Product used for unknown indication
     Dosage: 25 MILLIGRAM, ACCORDING TO THE LABEL, THE MEDICATION CONTAINED 25 MG QUININE SULPHATE, 162.5 MG AMID
     Route: 065
  7. PHENYTOIN SODIUM [Suspect]
     Active Substance: PHENYTOIN SODIUM
     Indication: Status epilepticus
     Dosage: 100 MILLIGRAM, BID
     Route: 065
  8. PHENYTOIN SODIUM [Suspect]
     Active Substance: PHENYTOIN SODIUM
     Dosage: UNK, DOSE REDUCED
     Route: 065
  9. PROPOFOL [Suspect]
     Active Substance: PROPOFOL
     Indication: Status epilepticus
     Dosage: IN A VARIABLE CONCENTRATION IN CONTINUOUS IV DRIP
     Route: 065
  10. ANTIPYRINE [Suspect]
     Active Substance: ANTIPYRINE
     Indication: Product used for unknown indication
     Dosage: ACCORDING TO THE LABEL, THE MEDICATION CONTAINED 25 MG QUININE SULPHATE, 162.5 MG AMIDOPYRINE, 187.5
     Route: 065
  11. ASPIRIN [Suspect]
     Active Substance: ASPIRIN
     Indication: Product used for unknown indication
     Dosage: ACCORDING TO THE LABEL, THE MEDICATION CONTAINED 25 MG QUININE SULPHATE, 162.5 MG AMIDOPYRINE, 187.5
     Route: 065
  12. DALFAMPRIDINE [Suspect]
     Active Substance: DALFAMPRIDINE
     Indication: Drug therapy
     Dosage: A CONTAINER WITH FAMPRIDINE HAD BEEN USED ACCIDENTALLY INSTEAD OF AMINOPHENAZONE
     Route: 065
  13. MIDAZOLAM [Suspect]
     Active Substance: MIDAZOLAM
     Indication: Status epilepticus
     Dosage: 1 MILLIGRAM, QD
     Route: 065
  14. VALPROIC ACID [Suspect]
     Active Substance: VALPROIC ACID
     Indication: Status epilepticus
     Dosage: 500 MILLIGRAM, TID
     Route: 065
  15. VALPROIC ACID [Suspect]
     Active Substance: VALPROIC ACID
     Dosage: UNK, DOSE REDUCED
     Route: 065
  16. PHENOBARBITAL [Suspect]
     Active Substance: PHENOBARBITAL
     Indication: Status epilepticus
     Dosage: 100 MILLIGRAM, QD
     Route: 065
  17. AMINOPHENAZONE [Suspect]
     Active Substance: AMINOPHENAZONE
     Indication: Product used for unknown indication
     Dosage: UNK
     Route: 065

REACTIONS (7)
  - Status epilepticus [Not Recovered/Not Resolved]
  - Toxicity to various agents [Unknown]
  - Lactic acidosis [Not Recovered/Not Resolved]
  - Drug ineffective [Unknown]
  - Product preparation error [Unknown]
  - Prescription drug used without a prescription [Unknown]
  - Product dispensing error [Unknown]
